FAERS Safety Report 25039138 (Version 1)
Quarter: 2025Q1

REPORT INFORMATION
  Report Type: Spontaneous
  Country: CN (occurrence: CN)
  Receive Date: 20250305
  Receipt Date: 20250305
  Transmission Date: 20250409
  Serious: Yes (Hospitalization, Other)
  Sender: BIOGEN
  Company Number: CN-BAT-2025BAT000142

PATIENT
  Age: 55 Year
  Sex: Female
  Weight: 50.0 kg

DRUGS (1)
  1. TOFIDENCE [Suspect]
     Active Substance: TOCILIZUMAB-BAVI
     Indication: Dermatomyositis
     Route: 041
     Dates: start: 20250124, end: 20250124

REACTIONS (4)
  - Chest discomfort [Unknown]
  - Rash maculo-papular [Recovering/Resolving]
  - Dyspnoea [Unknown]
  - Product use in unapproved indication [Unknown]

NARRATIVE: CASE EVENT DATE: 20250124
